FAERS Safety Report 15319585 (Version 3)
Quarter: 2018Q4

REPORT INFORMATION
  Report Type: Report from Study
  Country: JP (occurrence: JP)
  Receive Date: 20180827
  Receipt Date: 20181116
  Transmission Date: 20190204
  Serious: Yes (Hospitalization, Other)
  Sender: FDA-Public Use
  Company Number: JP-B.I. PHARMACEUTICALS,INC./RIDGEFIELD-2018-NB-000934

PATIENT
  Age: 67 Year
  Sex: Male
  Weight: 72.2 kg

DRUGS (9)
  1. RESPLEN [Concomitant]
     Active Substance: EPRAZINONE
     Indication: PRODUCT USED FOR UNKNOWN INDICATION
     Route: 065
     Dates: end: 20180223
  2. MYSER (DIFLUPREDNATE) [Concomitant]
     Active Substance: DIFLUPREDNATE
     Indication: SOLAR DERMATITIS
     Route: 065
     Dates: start: 20170417
  3. ENSURE [Suspect]
     Active Substance: AMINO ACIDS\DEXTROSE\ELECTROLYTES NOS\SOYBEAN OIL\VITAMINS
     Indication: DECREASED APPETITE
     Route: 065
     Dates: start: 20171020, end: 20180204
  4. SPIRIVA [Concomitant]
     Active Substance: TIOTROPIUM BROMIDE MONOHYDRATE
     Indication: BRONCHITIS CHRONIC
     Route: 055
  5. BIBF 1120 [Suspect]
     Active Substance: NINTEDANIB
     Indication: IDIOPATHIC PULMONARY FIBROSIS
     Route: 065
     Dates: start: 20170821, end: 20180223
  6. AMBROXOL HYDROCHLORIDE [Concomitant]
     Active Substance: AMBROXOL HYDROCHLORIDE
     Indication: PRODUCT USED FOR UNKNOWN INDICATION
     Route: 065
     Dates: start: 20171220, end: 20180314
  7. REBAMIPIDE [Concomitant]
     Active Substance: REBAMIPIDE
     Indication: PROPHYLAXIS
     Route: 065
     Dates: end: 20180305
  8. LAC-B [Concomitant]
     Active Substance: BIFIDOBACTERIUM SPP.
     Indication: PROPHYLAXIS AGAINST DIARRHOEA
     Route: 065
     Dates: start: 20171219, end: 20171226
  9. MUCOSOLVAN L [Concomitant]
     Active Substance: AMBROXOL HYDROCHLORIDE
     Indication: PRODUCT USED FOR UNKNOWN INDICATION
     Route: 065
     Dates: end: 20171214

REACTIONS (6)
  - Mechanical ileus [Recovered/Resolved]
  - Respiratory failure [Not Recovered/Not Resolved]
  - Decreased appetite [Recovered/Resolved]
  - Diarrhoea [Recovered/Resolved]
  - Paranasal sinus hyposecretion [Recovered/Resolved]
  - Eczema asteatotic [Recovered/Resolved]

NARRATIVE: CASE EVENT DATE: 20171020
